FAERS Safety Report 11080053 (Version 2)
Quarter: 2015Q2

REPORT INFORMATION
  Report Type: Spontaneous
  Country: CN (occurrence: CN)
  Receive Date: 20150430
  Receipt Date: 20150506
  Transmission Date: 20150821
  Serious: Yes (Death, Other)
  Sender: FDA-Public Use
  Company Number: CN-ASTRAZENECA-2015SE30941

PATIENT
  Age: 24051 Day
  Sex: Male

DRUGS (10)
  1. ATORVASTATIN [Concomitant]
     Active Substance: ATORVASTATIN
     Dates: start: 20150325
  2. AMLODIPINE [Concomitant]
     Active Substance: AMLODIPINE BESYLATE
     Dates: start: 20150325
  3. VOGLIBOSE [Concomitant]
     Active Substance: VOGLIBOSE
     Dates: start: 20150327
  4. ASPIRIN. [Concomitant]
     Active Substance: ASPIRIN
     Dates: start: 20150325
  5. PROTAMINE ZINC RECOMBINANT HUMAN INSULIN [Concomitant]
     Dosage: 8 IU IN THE MORNING, 12 IU IN THE EVENING
  6. HEPARIN [Concomitant]
     Active Substance: HEPARIN SODIUM
     Dosage: 5000 U DURING PCI SURGERY
     Dates: start: 201503
  7. BRILINTA [Suspect]
     Active Substance: TICAGRELOR
     Indication: CORONARY ARTERY DISEASE
     Route: 048
     Dates: start: 20150330, end: 20150330
  8. BRILINTA [Suspect]
     Active Substance: TICAGRELOR
     Indication: PERCUTANEOUS CORONARY INTERVENTION
     Route: 048
     Dates: start: 20150330, end: 20150330
  9. PERINDOPRIL [Concomitant]
     Active Substance: PERINDOPRIL
     Dates: start: 20150325
  10. PANTOPRAZOLE [Concomitant]
     Active Substance: PANTOPRAZOLE SODIUM
     Dosage: 40 MG, GTT, DAILY
     Route: 042
     Dates: start: 20150325

REACTIONS (10)
  - Activated partial thromboplastin time prolonged [Unknown]
  - Brain herniation [Unknown]
  - Vomiting [Unknown]
  - White blood cell count increased [Unknown]
  - Syncope [Unknown]
  - Cerebral haemorrhage [Fatal]
  - Subarachnoid haemorrhage [Unknown]
  - Blood pressure systolic increased [Unknown]
  - Blood creatinine increased [Unknown]
  - Nausea [Unknown]

NARRATIVE: CASE EVENT DATE: 20150330
